FAERS Safety Report 6093183-1 (Version None)
Quarter: 2009Q1

REPORT INFORMATION
  Report Type: 
  Country: None (occurrence: None)
  Receive Date: 20090226
  Receipt Date: 20090217
  Transmission Date: 20090719
  Serious: Yes (Other)
  Sender: FDA-Public Use
  Company Number: US-JNJFOC-20090204617

PATIENT
  Sex: Female

DRUGS (2)
  1. REMICADE [Suspect]
     Indication: CROHN'S DISEASE
     Route: 042
  2. DEPO-MEDROL [Concomitant]
     Route: 030

REACTIONS (3)
  - ANTINUCLEAR ANTIBODY INCREASED [None]
  - CHEST DISCOMFORT [None]
  - DOUBLE STRANDED DNA ANTIBODY [None]
